FAERS Safety Report 7150408-9 (Version None)
Quarter: 2010Q4

REPORT INFORMATION
  Report Type: 
  Country: None (occurrence: None)
  Receive Date: 20101210
  Receipt Date: 20101126
  Transmission Date: 20110411
  Serious: Yes (Life-Threatening, Hospitalization)
  Sender: FDA-Public Use
  Company Number: PHHY2009DE08993

PATIENT
  Age: 52 Year
  Sex: Male

DRUGS (19)
  1. BACLOFEN [Suspect]
     Indication: MUSCLE SPASTICITY
     Dosage: 25 MG, TID
     Route: 048
     Dates: end: 20090116
  2. BACLOFEN [Suspect]
     Dosage: UNK
     Dates: start: 20090120
  3. ANTELEPSIN [Suspect]
     Indication: EPILEPSY
     Dosage: 1 MG, QD
     Route: 048
     Dates: start: 20081112, end: 20090116
  4. DIPIPERON [Suspect]
     Indication: CEREBROVASCULAR ACCIDENT
     Dosage: 40 MG, QD
     Route: 048
     Dates: end: 20090116
  5. TRAMAL [Concomitant]
     Indication: BACK PAIN
     Dosage: 100 MG
     Route: 048
  6. LYRICA [Concomitant]
     Indication: ANXIETY DISORDER
     Dosage: 75 MG
     Dates: start: 20081001, end: 20090115
  7. CARBAMAZEPINE [Concomitant]
     Indication: EPILEPSY
     Dosage: 400 MG
     Route: 048
  8. TOREM [Concomitant]
     Indication: RENAL IMPAIRMENT
     Dosage: 20 MG
  9. CAPTOPRIL [Concomitant]
     Indication: CARDIAC FAILURE
     Dosage: 1 DF, QD
     Route: 048
  10. BEZAFIBRATE [Concomitant]
     Indication: METABOLIC SYNDROME
     Dosage: 400 MG
     Route: 048
     Dates: end: 20090115
  11. AGGRENOX [Concomitant]
     Indication: CEREBROVASCULAR ACCIDENT
     Dosage: 200 MG ONE TABLET
     Route: 048
     Dates: start: 19550101
  12. AGGRENOX [Concomitant]
     Dosage: 25 MG ONE TABLET DAILY
  13. SPIRONO [Concomitant]
     Indication: CARDIAC FAILURE
     Dosage: 25 MG DAILY
     Route: 048
  14. TAMSULOSIN [Concomitant]
     Indication: BENIGN PROSTATIC HYPERPLASIA
     Dosage: 0.4 MG DAILY
  15. IMBUN [Concomitant]
     Indication: BACK PAIN
     Dosage: 600 MG
     Route: 048
     Dates: start: 20090115
  16. MOVICOL [Concomitant]
     Indication: CONSTIPATION
     Dosage: ONE DOSAGE FORM
     Route: 048
  17. METAMIZOLE [Concomitant]
     Indication: BACK PAIN
     Dosage: 20GTT DROP(S)
     Dates: start: 20090115
  18. LEVEMIR [Concomitant]
     Indication: TYPE 2 DIABETES MELLITUS
     Dosage: 4IU INTERNATIONAL
     Route: 058
  19. PANTOZOL [Concomitant]
     Indication: PROPHYLAXIS AGAINST GASTROINTESTINAL ULCER
     Dosage: 40 MG
     Dates: start: 20081105

REACTIONS (6)
  - C-REACTIVE PROTEIN INCREASED [None]
  - GAMMA-GLUTAMYLTRANSFERASE INCREASED [None]
  - PLEURAL EFFUSION [None]
  - PNEUMONIA ASPIRATION [None]
  - RESPIRATORY FAILURE [None]
  - SOMNOLENCE [None]
